FAERS Safety Report 19423725 (Version 1)
Quarter: 2021Q2

REPORT INFORMATION
  Report Type: Other
  Country: ES (occurrence: ES)
  Receive Date: 20210616
  Receipt Date: 20210616
  Transmission Date: 20210717
  Serious: Yes (Other)
  Sender: FDA-Public Use
  Company Number: ES-EMD SERONO-9245321

PATIENT
  Age: 3 Year
  Sex: Male
  Weight: 11 kg

DRUGS (2)
  1. SOMATROPIN. [Suspect]
     Active Substance: SOMATROPIN
     Dosage: DOSE REINTRODUCED AT A LOW DOSE
  2. SOMATROPIN. [Suspect]
     Active Substance: SOMATROPIN
     Indication: GROWTH HORMONE DEFICIENCY

REACTIONS (1)
  - Papilloedema [Recovered/Resolved]
